FAERS Safety Report 25567212 (Version 1)
Quarter: 2025Q3

REPORT INFORMATION
  Report Type: Report from Study
  Country: CA (occurrence: CA)
  Receive Date: 20250716
  Receipt Date: 20250716
  Transmission Date: 20251021
  Serious: Yes (Other)
  Sender: TAKEDA
  Company Number: CA-TAKEDA-2024TUS057119

PATIENT
  Sex: Female

DRUGS (11)
  1. VEDOLIZUMAB [Suspect]
     Active Substance: VEDOLIZUMAB
     Indication: Colitis ulcerative
  2. VEDOLIZUMAB [Suspect]
     Active Substance: VEDOLIZUMAB
     Dosage: 300 MILLIGRAM, Q4WEEKS
     Dates: start: 20201103
  3. VEDOLIZUMAB [Suspect]
     Active Substance: VEDOLIZUMAB
  4. VEDOLIZUMAB [Suspect]
     Active Substance: VEDOLIZUMAB
  5. VEDOLIZUMAB [Suspect]
     Active Substance: VEDOLIZUMAB
  6. VEDOLIZUMAB [Suspect]
     Active Substance: VEDOLIZUMAB
     Dosage: 300 MILLIGRAM, Q4WEEKS
     Dates: start: 20240729
  7. IRBESARTAN [Concomitant]
     Active Substance: IRBESARTAN
  8. ESTRADIOL [Concomitant]
     Active Substance: ESTRADIOL
  9. VITAMIN D [Concomitant]
     Active Substance: VITAMIN D NOS
  10. PENTASA [Concomitant]
     Active Substance: MESALAMINE
  11. ACETAMINOPHEN [Concomitant]
     Active Substance: ACETAMINOPHEN
     Indication: Premedication

REACTIONS (16)
  - Haematochezia [Recovered/Resolved]
  - Diarrhoea [Unknown]
  - Abdominal pain upper [Recovering/Resolving]
  - Stress [Unknown]
  - Weight decreased [Unknown]
  - Viral infection [Unknown]
  - Defaecation urgency [Unknown]
  - Anal incontinence [Unknown]
  - Myalgia [Not Recovered/Not Resolved]
  - Frequent bowel movements [Recovering/Resolving]
  - Anal haemorrhage [Recovered/Resolved]
  - Abdominal discomfort [Recovered/Resolved]
  - Abdominal pain [Not Recovered/Not Resolved]
  - Constipation [Unknown]
  - Arthralgia [Unknown]
  - Fatigue [Recovered/Resolved]
